FAERS Safety Report 7952991-X (Version None)
Quarter: 2011Q4

REPORT INFORMATION
  Report Type: 
  Country: None (occurrence: None)
  Receive Date: 20111201
  Receipt Date: 20111118
  Transmission Date: 20120403
  Serious: Yes (Other)
  Sender: FDA-Public Use
  Company Number: US-WATSON-2011-19718

PATIENT
  Sex: Female

DRUGS (3)
  1. DARVOCET [Suspect]
     Indication: PAIN MANAGEMENT
     Dosage: UNK
     Route: 048
  2. DARVON [Suspect]
     Indication: PAIN MANAGEMENT
     Dosage: UNK
     Route: 048
  3. PROPOXYPHENE HCL AND ACETAMINOPHEN [Suspect]
     Indication: PAIN MANAGEMENT
     Dosage: UNK
     Route: 048

REACTIONS (3)
  - ATRIAL FIBRILLATION [None]
  - CARDIOVASCULAR DISORDER [None]
  - CARDIAC ABLATION [None]
